FAERS Safety Report 13539465 (Version 1)
Quarter: 2017Q2

REPORT INFORMATION
  Report Type: Spontaneous
  Country: US (occurrence: US)
  Receive Date: 20170512
  Receipt Date: 20170512
  Transmission Date: 20170830
  Serious: No
  Sender: FDA-Public Use
  Company Number: US-PFIZER INC-2017207733

PATIENT
  Age: 56 Year
  Sex: Female

DRUGS (2)
  1. IBRANCE [Suspect]
     Active Substance: PALBOCICLIB
     Dosage: 100 MG, UNK
     Dates: start: 20170410, end: 20170501
  2. AFINITOR [Suspect]
     Active Substance: EVEROLIMUS
     Dosage: 7.5 MG, UNK
     Dates: start: 20170410, end: 20170501

REACTIONS (5)
  - Bone pain [Unknown]
  - Vomiting [Unknown]
  - Feeding disorder [Unknown]
  - Nausea [Unknown]
  - Pyrexia [Unknown]
